FAERS Safety Report 10389600 (Version 3)
Quarter: 2014Q4

REPORT INFORMATION
  Report Type: Report from Study
  Country: IE (occurrence: IE)
  Receive Date: 20140818
  Receipt Date: 20141020
  Transmission Date: 20150528
  Serious: Yes (Death, Hospitalization, Other)
  Sender: FDA-Public Use
  Company Number: IE-AMGEN-IRLSP2014061949

PATIENT
  Age: 77 Year
  Sex: Male

DRUGS (9)
  1. NEUPOGEN [Suspect]
     Active Substance: FILGRASTIM
     Indication: MYELODYSPLASTIC SYNDROME
     Dosage: 30 MU, ONCE WEEKLY FOR 4 WEEKS
     Route: 058
     Dates: start: 20131204
  2. LITHIUM [Suspect]
     Active Substance: LITHIUM CARBONATE
     Indication: PRODUCT USED FOR UNKNOWN INDICATION
     Dosage: UNK
     Route: 065
  3. EZETROL [Concomitant]
     Active Substance: EZETIMIBE
     Dosage: UNK
  4. EBIXA [Concomitant]
     Active Substance: MEMANTINE HYDROCHLORIDE
     Dosage: UNK
  5. DONESYN [Concomitant]
     Dosage: UNK
  6. ARANESP [Suspect]
     Active Substance: DARBEPOETIN ALFA
     Indication: MYELODYSPLASTIC SYNDROME
     Dosage: 150 MCG, WEEKLY
     Route: 058
     Dates: start: 20131204
  7. GALFER [Concomitant]
     Active Substance: IRON
     Dosage: UNK
  8. ROSUVA [Concomitant]
     Dosage: UNK
  9. HALOPERIDOL. [Concomitant]
     Active Substance: HALOPERIDOL
     Dosage: UNK

REACTIONS (5)
  - Sepsis [Fatal]
  - Dementia [Unknown]
  - Nephrogenic diabetes insipidus [Fatal]
  - Lower respiratory tract infection [Fatal]
  - General physical condition abnormal [Unknown]

NARRATIVE: CASE EVENT DATE: 201312
